FAERS Safety Report 11463715 (Version 1)
Quarter: 2015Q3

REPORT INFORMATION
  Report Type: Spontaneous
  Country: US (occurrence: US)
  Receive Date: 20150831
  Receipt Date: 20150831
  Transmission Date: 20151125
  Serious: No
  Sender: FDA-Public Use
  Company Number: US-ELI_LILLY_AND_COMPANY-US201104004742

PATIENT
  Age: 54 Year
  Sex: Female

DRUGS (4)
  1. HYDROMORPHONE [Concomitant]
     Active Substance: HYDROMORPHONE
  2. INSULIN [Concomitant]
     Active Substance: INSULIN NOS
  3. CYMBALTA [Suspect]
     Active Substance: DULOXETINE HYDROCHLORIDE
     Indication: ARTHRITIS
     Dosage: 30 MG, QD
     Dates: start: 201102
  4. LORTAB [Concomitant]
     Active Substance: ACETAMINOPHEN\HYDROCODONE BITARTRATE

REACTIONS (4)
  - Gastrooesophageal reflux disease [Unknown]
  - Chest pain [Unknown]
  - Burning sensation [Unknown]
  - Hot flush [Unknown]

NARRATIVE: CASE EVENT DATE: 201102
